FAERS Safety Report 12131000 (Version 1)
Quarter: 2016Q1

REPORT INFORMATION
  Report Type: Spontaneous
  Country: US (occurrence: None)
  Receive Date: 20160229
  Receipt Date: 20160229
  Transmission Date: 20160526
  Serious: No
  Sender: FDA-Public Use
  Company Number: None

PATIENT
  Age: 74 Year
  Sex: Female
  Weight: 63.5 kg

DRUGS (7)
  1. COQ10 [Concomitant]
     Active Substance: UBIDECARENONE
  2. LEVOFLOXACIN 500 MG [Suspect]
     Active Substance: LEVOFLOXACIN
     Indication: BRONCHITIS
     Dosage: 1 ONCE DAILY
     Route: 048
     Dates: start: 20160212, end: 20160218
  3. NIFEDIPINE. [Concomitant]
     Active Substance: NIFEDIPINE
  4. VITAMIN C [Concomitant]
     Active Substance: ASCORBIC ACID
  5. SIMVASTATIN. [Concomitant]
     Active Substance: SIMVASTATIN
  6. SYNTHROID [Concomitant]
     Active Substance: LEVOTHYROXINE SODIUM
  7. CA 500 [Concomitant]

REACTIONS (1)
  - Tendonitis [None]

NARRATIVE: CASE EVENT DATE: 20160213
